FAERS Safety Report 16596112 (Version 2)
Quarter: 2019Q4

REPORT INFORMATION
  Report Type: Spontaneous
  Country: FR (occurrence: FR)
  Receive Date: 20190719
  Receipt Date: 20191011
  Transmission Date: 20200122
  Serious: Yes (Hospitalization)
  Sender: FDA-Public Use
  Company Number: FR-ACCORD-139062

PATIENT
  Age: 73 Year
  Sex: Female

DRUGS (2)
  1. DOCETAXEL ACCORD [Suspect]
     Active Substance: DOCETAXEL
     Indication: NEOPLASM MALIGNANT
     Dosage: LAST RECEIVED DATE 04-JUN-2019
     Route: 048
     Dates: start: 20190507
  2. ATORVASTATIN/ATORVASTATIN CALCIUM [Suspect]
     Active Substance: ATORVASTATIN CALCIUM
     Indication: DYSLIPIDAEMIA
     Route: 048

REACTIONS (2)
  - Necrotising myositis [Unknown]
  - Myopathy [Unknown]

NARRATIVE: CASE EVENT DATE: 20190610
